FAERS Safety Report 6810484-7 (Version None)
Quarter: 2010Q2

REPORT INFORMATION
  Report Type: 
  Country: None (occurrence: None)
  Receive Date: 20100630
  Receipt Date: 20100622
  Transmission Date: 20101027
  Serious: Yes (Other)
  Sender: FDA-Public Use
  Company Number: US-PFIZER INC-2010078547

PATIENT
  Sex: Male
  Weight: 120.18 kg

DRUGS (2)
  1. LIPITOR [Suspect]
     Indication: BLOOD CHOLESTEROL INCREASED
     Dosage: 20 MG, DAILY
     Route: 048
     Dates: start: 20100401
  2. ACTOPLUS MET [Concomitant]
     Indication: DIABETES MELLITUS
     Dosage: 15/850 MG, 2X/DAY

REACTIONS (2)
  - BLOOD ELECTROLYTES DECREASED [None]
  - HIGH DENSITY LIPOPROTEIN DECREASED [None]
